FAERS Safety Report 8165169-4 (Version None)
Quarter: 2012Q1

REPORT INFORMATION
  Report Type: 
  Country: None (occurrence: None)
  Receive Date: 20120227
  Receipt Date: 20120223
  Transmission Date: 20120608
  Serious: No
  Sender: FDA-Public Use
  Company Number: US-PFIZER INC-2012048778

PATIENT
  Sex: Female
  Weight: 72.562 kg

DRUGS (12)
  1. BACLOFEN [Concomitant]
     Indication: PAIN
     Dosage: UNK
  2. CHANTIX [Suspect]
     Dosage: 0.5 MG, 1X/DAY
     Dates: start: 20120201
  3. NORCO [Concomitant]
     Indication: PAIN
     Dosage: UNK
  4. ATENOLOL [Concomitant]
     Indication: HYPERTENSION
     Dosage: UNK
  5. CHANTIX [Suspect]
     Dosage: 1 MG, UNK
     Dates: start: 20120201
  6. VITAMIN D [Concomitant]
     Indication: OSTEOPOROSIS
     Dosage: UNK
  7. NEURONTIN [Concomitant]
     Indication: PAIN
     Dosage: UNK
  8. CHANTIX [Suspect]
     Indication: SMOKING CESSATION THERAPY
     Dosage: 1 MG, 2X/DAY
     Route: 048
     Dates: start: 20120101
  9. SYNTHROID [Concomitant]
     Indication: THYROID DISORDER
     Dosage: UNK
  10. FOSAMAX [Concomitant]
     Indication: OSTEOPOROSIS
     Dosage: UNK
  11. CALCIUM [Concomitant]
     Indication: OSTEOPOROSIS
     Dosage: UNK
  12. TRAZODONE [Concomitant]
     Indication: PAIN
     Dosage: UNK

REACTIONS (1)
  - NAUSEA [None]
